FAERS Safety Report 8972412 (Version 1)
Quarter: 2012Q4

REPORT INFORMATION
  Report Type: Spontaneous
  Country: US (occurrence: None)
  Receive Date: 20121217
  Receipt Date: 20121217
  Transmission Date: 20130627
  Serious: Yes (Death, Life-Threatening)
  Sender: FDA-Public Use
  Company Number: None

PATIENT
  Age: 62 Year
  Sex: Male
  Weight: 99 kg

DRUGS (1)
  1. RASBURICASE [Suspect]
     Indication: TUMOR LYSIS SYNDROME
     Route: 041
     Dates: start: 20121105, end: 20121106

REACTIONS (5)
  - Continuous haemodiafiltration [None]
  - Sepsis [None]
  - Acute respiratory distress syndrome [None]
  - Methaemoglobinaemia [None]
  - Renal failure [None]
